FAERS Safety Report 9524582 (Version 1)
Quarter: 2013Q3

REPORT INFORMATION
  Report Type: Spontaneous
  Country: US (occurrence: US)
  Receive Date: 20130916
  Receipt Date: 20130916
  Transmission Date: 20140515
  Serious: No
  Sender: FDA-Public Use
  Company Number: US-MYLANLABS-2012S1020369

PATIENT
  Age: 59 Year
  Sex: Female

DRUGS (2)
  1. SUMATRIPTAN SUCCINATE TABLETS [Suspect]
     Indication: MIGRAINE
     Route: 048
     Dates: start: 20120913
  2. CYMBALTA [Concomitant]

REACTIONS (2)
  - Drug ineffective [Recovered/Resolved]
  - Migraine [Recovered/Resolved]
